FAERS Safety Report 22355674 (Version 2)
Quarter: 2023Q2

REPORT INFORMATION
  Report Type: Report from Study
  Country: GB (occurrence: GB)
  Receive Date: 20230523
  Receipt Date: 20230613
  Transmission Date: 20230721
  Serious: Yes (Death, Hospitalization, Other)
  Sender: FDA-Public Use
  Company Number: GB-002147023-NVSC2022GB202194

PATIENT
  Age: 57 Year
  Sex: Male
  Weight: 100 kg

DRUGS (2)
  1. COSENTYX [Suspect]
     Active Substance: SECUKINUMAB
     Indication: Psoriasis
     Dosage: 300 MG, QMO
     Route: 065
     Dates: start: 20181018
  2. COCODAMOL [Concomitant]
     Active Substance: ACETAMINOPHEN\CODEINE PHOSPHATE
     Indication: Product used for unknown indication
     Dosage: UNK
     Route: 065
     Dates: start: 20170901

REACTIONS (11)
  - Death [Fatal]
  - Body temperature increased [Recovered/Resolved]
  - Lower respiratory tract infection [Recovered/Resolved]
  - Pneumoperitoneum [Recovered/Resolved]
  - Pain [Recovered/Resolved]
  - Anastomotic leak [Recovered/Resolved]
  - Pelvic abscess [Recovered/Resolved]
  - Hypotension [Recovered/Resolved]
  - Adenocarcinoma of colon [Not Recovered/Not Resolved]
  - Adenocarcinoma metastatic [Unknown]
  - Hepatic cyst [Unknown]

NARRATIVE: CASE EVENT DATE: 20210329
